FAERS Safety Report 12521286 (Version 1)
Quarter: 2016Q3

REPORT INFORMATION
  Report Type: Spontaneous
  Country: DE (occurrence: DE)
  Receive Date: 20160701
  Receipt Date: 20160701
  Transmission Date: 20161109
  Serious: Yes (Hospitalization, Other)
  Sender: FDA-Public Use
  Company Number: DE-ABBVIE-16P-062-1618533-00

PATIENT
  Age: 53 Year
  Sex: Female
  Weight: 57 kg

DRUGS (12)
  1. ZINC [Concomitant]
     Active Substance: ZINC\ZINC CHLORIDE
     Indication: PRODUCT USED FOR UNKNOWN INDICATION
  2. FEXOFENADINE [Concomitant]
     Active Substance: FEXOFENADINE\FEXOFENADINE HYDROCHLORIDE
     Indication: DERMATITIS CONTACT
     Route: 048
  3. RANITIDIN [Concomitant]
     Active Substance: RANITIDINE HYDROCHLORIDE
     Indication: PRODUCT USED FOR UNKNOWN INDICATION
  4. SEVORANE [Suspect]
     Active Substance: SEVOFLURANE
     Indication: OCCUPATIONAL EXPOSURE TO PRODUCT
     Dosage: DAILY
     Route: 055
  5. DESFLURANE. [Suspect]
     Active Substance: DESFLURANE
     Indication: OCCUPATIONAL EXPOSURE TO PRODUCT
     Route: 055
  6. AERIUS [Concomitant]
     Active Substance: DESLORATADINE
     Indication: PRODUCT USED FOR UNKNOWN INDICATION
  7. VITAMIN C [Concomitant]
     Active Substance: ASCORBIC ACID
     Indication: PRODUCT USED FOR UNKNOWN INDICATION
  8. ELONTRIL [Concomitant]
     Active Substance: BUPROPION HYDROCHLORIDE
     Indication: PRODUCT USED FOR UNKNOWN INDICATION
     Dosage: 150 MG; CURRENTLY BEING GRADUALLY REDUCED
  9. ESPUMISAN [Concomitant]
     Active Substance: DIMETHICONE
     Indication: PRODUCT USED FOR UNKNOWN INDICATION
     Route: 048
  10. SUPRANE [Suspect]
     Active Substance: DESFLURANE
     Indication: OCCUPATIONAL EXPOSURE TO PRODUCT
     Dosage: DAILY
     Route: 055
  11. NATRIUMCROMOGLICAT [Concomitant]
     Indication: PRODUCT USED FOR UNKNOWN INDICATION
     Dosage: 3 X 2
  12. ALLERGOVAL [Concomitant]
     Indication: PRODUCT USED FOR UNKNOWN INDICATION

REACTIONS (41)
  - Leiomyoma [Unknown]
  - Abdominal distension [Unknown]
  - Drug intolerance [Unknown]
  - Sinusitis [Unknown]
  - Sinusitis [Unknown]
  - Hyperplasia [Unknown]
  - Chronic fatigue syndrome [Unknown]
  - Infection [Unknown]
  - Pruritus [Unknown]
  - Renal failure [Unknown]
  - Uterine leiomyoma [Unknown]
  - Rash [Recovering/Resolving]
  - Gastrointestinal pain [Unknown]
  - Pulpitis dental [Unknown]
  - Fatigue [Recovering/Resolving]
  - Irritable bowel syndrome [Unknown]
  - Nasal septum deviation [Unknown]
  - Hypersensitivity [Recovering/Resolving]
  - Urticaria [Unknown]
  - Diarrhoea [Unknown]
  - Cough [Unknown]
  - Bronchial hyperreactivity [Unknown]
  - Food intolerance [Unknown]
  - Histamine intolerance [Unknown]
  - Gastroenteritis [Unknown]
  - Purulent discharge [Unknown]
  - Flatulence [Unknown]
  - Anaphylactic reaction [Unknown]
  - Gastrointestinal disorder [Recovering/Resolving]
  - Productive cough [Unknown]
  - Rhinitis allergic [Recovered/Resolved]
  - Abdominal pain [Recovered/Resolved]
  - Mobility decreased [Recovered/Resolved]
  - Sinusitis [Unknown]
  - Peripheral swelling [Unknown]
  - Urticaria [Unknown]
  - Urticaria [Unknown]
  - Pruritus [Recovering/Resolving]
  - Nausea [Unknown]
  - Allergic gastroenteritis [Unknown]
  - Colitis [Unknown]

NARRATIVE: CASE EVENT DATE: 1999
